FAERS Safety Report 9998016 (Version 2)
Quarter: 2014Q2

REPORT INFORMATION
  Report Type: Spontaneous
  Country: US (occurrence: US)
  Receive Date: 20140311
  Receipt Date: 20140421
  Transmission Date: 20141212
  Serious: No
  Sender: FDA-Public Use
  Company Number: US-FRI-1000060349

PATIENT
  Sex: Male

DRUGS (8)
  1. FETZIMA [Suspect]
     Dosage: 20 MG
     Route: 048
     Dates: start: 20140205, end: 20140206
  2. FETZIMA [Suspect]
     Dosage: 40 MG
     Route: 048
     Dates: start: 20140207, end: 20140220
  3. FETZIMA [Suspect]
     Dosage: 80 MG
     Route: 048
     Dates: start: 20140221
  4. GABAPENTIN [Concomitant]
     Dosage: 1800 MG
  5. SERAX [Concomitant]
     Dosage: 10-20 MG DAILY AS NEEDED
  6. SINGULAIR [Concomitant]
     Dosage: 10 MG
  7. FLOVENT [Concomitant]
     Dosage: TWICE DAILY
  8. ALBUTEROL [Concomitant]
     Dosage: AS NEEDED

REACTIONS (1)
  - Dyspnoea [Recovered/Resolved]
